FAERS Safety Report 25842653 (Version 2)
Quarter: 2025Q3

REPORT INFORMATION
  Report Type: Spontaneous
  Country: TR (occurrence: TR)
  Receive Date: 20250924
  Receipt Date: 20250926
  Transmission Date: 20251021
  Serious: Yes (Other)
  Sender: NOVARTIS
  Company Number: TR-002147023-NVSC2025TR144788

PATIENT
  Age: 24 Year
  Sex: Male

DRUGS (3)
  1. VOTRIENT [Suspect]
     Active Substance: PAZOPANIB HYDROCHLORIDE
     Indication: Product used for unknown indication
     Dosage: 800 MG, QD
     Route: 048
  2. VOTRIENT [Suspect]
     Active Substance: PAZOPANIB HYDROCHLORIDE
     Route: 065
  3. REGORAFENIB [Concomitant]
     Active Substance: REGORAFENIB
     Indication: Product used for unknown indication
     Route: 065

REACTIONS (5)
  - Metastases to lung [Unknown]
  - Malignant neoplasm progression [Unknown]
  - Diarrhoea [Unknown]
  - Hair colour changes [Unknown]
  - Therapy partial responder [Unknown]
